FAERS Safety Report 4733005-1 (Version None)
Quarter: 2005Q3

REPORT INFORMATION
  Report Type: 
  Country: None (occurrence: None)
  Receive Date: 20050801
  Receipt Date: 20050801
  Transmission Date: 20060218
  Serious: Yes (Hospitalization)
  Sender: FDA-Public Use
  Company Number: None

PATIENT
  Sex: Male
  Weight: 99.3377 kg

DRUGS (1)
  1. TRILEPTAL [Suspect]
     Indication: BIPOLAR DISORDER
     Dosage: 600 MG BID ORAL
     Route: 048
     Dates: start: 20041227, end: 20050509

REACTIONS (4)
  - HYPERSENSITIVITY [None]
  - HYPONATRAEMIA [None]
  - MALAISE [None]
  - NEUROLEPTIC MALIGNANT SYNDROME [None]
